FAERS Safety Report 5824296-4 (Version None)
Quarter: 2008Q3

REPORT INFORMATION
  Report Type: 
  Country: None (occurrence: None)
  Receive Date: 20080722
  Receipt Date: 20080707
  Transmission Date: 20090109
  Serious: Yes (Hospitalization, Other)
  Sender: FDA-Public Use
  Company Number: 2008070017

PATIENT
  Age: 43 Year
  Sex: Female
  Weight: 62 kg

DRUGS (3)
  1. ALLERGODIL [Suspect]
     Indication: RHINITIS ALLERGIC
     Dosage: 508 MCG (254 MCG,2 IN 1 D),IN
     Dates: start: 20080125, end: 20080125
  2. STALORAL (ALLERGENS,POLLEN, PLANT EXTRACT) [Concomitant]
  3. YASMIN [Concomitant]

REACTIONS (6)
  - CONFUSIONAL STATE [None]
  - FEELING DRUNK [None]
  - MALAISE [None]
  - NAUSEA [None]
  - SYNCOPE VASOVAGAL [None]
  - VERTIGO [None]
